FAERS Safety Report 5958396-5 (Version None)
Quarter: 2008Q4

REPORT INFORMATION
  Report Type: 
  Country: None (occurrence: None)
  Receive Date: 20081117
  Receipt Date: 20081031
  Transmission Date: 20090506
  Serious: Yes (Death)
  Sender: FDA-Public Use
  Company Number: 2008S1019859

PATIENT
  Age: 24 Year
  Sex: Male

DRUGS (7)
  1. AMNESTEEM [Suspect]
     Dosage: 130 MG; TWICE A DAY; ORAL, 130 MG; TWICE A DAY; ORAL
     Route: 048
     Dates: start: 20080822, end: 20080901
  2. AMNESTEEM [Suspect]
     Dosage: 130 MG; TWICE A DAY; ORAL, 130 MG; TWICE A DAY; ORAL
     Route: 048
     Dates: start: 20081001, end: 20081001
  3. VICODIN [Concomitant]
  4. MORPHINE [Concomitant]
  5. ETOPOSIDE [Concomitant]
  6. ACTIVAN [Concomitant]
  7. KEPPRA [Concomitant]

REACTIONS (1)
  - DEATH [None]
